FAERS Safety Report 19217109 (Version 1)
Quarter: 2021Q2

REPORT INFORMATION
  Report Type: Spontaneous
  Country: PL (occurrence: PL)
  Receive Date: 20210505
  Receipt Date: 20210505
  Transmission Date: 20210717
  Serious: Yes (Other)
  Sender: FDA-Public Use
  Company Number: PL-PFIZER INC-2021434759

PATIENT
  Age: 44 Year
  Sex: Male
  Weight: 75 kg

DRUGS (1)
  1. SUTENT [Suspect]
     Active Substance: SUNITINIB MALATE
     Indication: RENAL CELL CARCINOMA
     Dosage: 50 MG
     Route: 048

REACTIONS (19)
  - Weight decreased [Unknown]
  - Epistaxis [Unknown]
  - Thrombocytopenia [Unknown]
  - Stomatitis [Unknown]
  - Chills [Unknown]
  - Pyrexia [Unknown]
  - Blood thyroid stimulating hormone increased [Unknown]
  - Aspartate aminotransferase increased [Unknown]
  - Pharyngeal erythema [Unknown]
  - Hyperglycaemia [Unknown]
  - Leukopenia [Unknown]
  - Oropharyngeal pain [Unknown]
  - Blood pressure increased [Unknown]
  - Pharyngeal oedema [Unknown]
  - Yellow skin [Unknown]
  - Chronic kidney disease [Unknown]
  - Weight increased [Unknown]
  - Anaemia [Unknown]
  - Neutropenia [Unknown]
